FAERS Safety Report 26204743 (Version 1)
Quarter: 2025Q4

REPORT INFORMATION
  Report Type: Spontaneous
  Country: EU (occurrence: EU)
  Receive Date: 20251227
  Receipt Date: 20251227
  Transmission Date: 20260117
  Serious: Yes (Hospitalization)
  Sender: AUROBINDO
  Company Number: EU-CADRBFARM-2025340255

PATIENT
  Age: 3 Year
  Sex: Male
  Weight: 18 kg

DRUGS (8)
  1. ACYCLOVIR [Suspect]
     Active Substance: ACYCLOVIR
     Indication: Aphthous ulcer
     Dosage: 200 MILLIGRAM, 3 TIMES A DAY (200 MG 3X TGL. IV
     Dates: start: 20251121, end: 20251126
  2. ACYCLOVIR [Suspect]
     Active Substance: ACYCLOVIR
     Indication: Herpes simplex
  3. ACETAMINOPHEN [Suspect]
     Active Substance: ACETAMINOPHEN
     Indication: Pain
     Dosage: 280 MILLIGRAM, FOUR TIMES/DAY (280 MG 4X TGL.)
     Dates: start: 20251121, end: 20251126
  4. ACETAMINOPHEN [Suspect]
     Active Substance: ACETAMINOPHEN
     Indication: Pyrexia
  5. METAMIZOL [Suspect]
     Active Substance: METAMIZOLE SODIUM
     Indication: Pain
     Dosage: 270 MILLIGRAM, FOUR TIMES/DAY (270 MG 4X TGL.)
     Dates: start: 20251121, end: 20251126
  6. TACROLIMUS [Concomitant]
     Active Substance: TACROLIMUS
     Indication: Nephrotic syndrome
     Dosage: UNK
     Route: 061
  7. PREDNISOLONE [Concomitant]
     Active Substance: PREDNISOLONE
     Indication: Nephrotic syndrome
     Dosage: 50 MILLIGRAM, ONCE A DAY (50 MG 1X TGL.)
     Dates: start: 20251121
  8. PREDNISOLONE [Concomitant]
     Active Substance: PREDNISOLONE
     Indication: Disease recurrence

REACTIONS (5)
  - Papule [Recovering/Resolving]
  - Rash [Recovering/Resolving]
  - Rash erythematous [Recovering/Resolving]
  - Rash macular [Recovering/Resolving]
  - Urticaria [Recovering/Resolving]

NARRATIVE: CASE EVENT DATE: 20251124
